FAERS Safety Report 10226338 (Version 3)
Quarter: 2014Q3

REPORT INFORMATION
  Report Type: Spontaneous
  Country: US (occurrence: US)
  Receive Date: 20140609
  Receipt Date: 20140903
  Transmission Date: 20150326
  Serious: Yes (Hospitalization, Other)
  Sender: FDA-Public Use
  Company Number: US-GILEAD-2014-0104683

PATIENT
  Age: 82 Year
  Sex: Male

DRUGS (13)
  1. LETAIRIS [Suspect]
     Active Substance: AMBRISENTAN
     Indication: PULMONARY ARTERIAL HYPERTENSION
     Dosage: 5 MG, QD
     Route: 065
     Dates: start: 20110506, end: 201406
  2. SYMBICORT [Concomitant]
     Active Substance: BUDESONIDE\FORMOTEROL FUMARATE DIHYDRATE
  3. DIOVAN [Concomitant]
     Active Substance: VALSARTAN
  4. VENTAVIS [Concomitant]
     Active Substance: ILOPROST
  5. SPIRIVA [Concomitant]
     Active Substance: TIOTROPIUM BROMIDE MONOHYDRATE
  6. GLIPIZIDE. [Concomitant]
     Active Substance: GLIPIZIDE
  7. CENTRUM                            /02267801/ [Concomitant]
  8. GEMFIBROZIL. [Concomitant]
     Active Substance: GEMFIBROZIL
  9. ADCIRCA [Concomitant]
     Active Substance: TADALAFIL
     Indication: PULMONARY HYPERTENSION
     Dates: start: 20110421
  10. CIALIS [Concomitant]
     Active Substance: TADALAFIL
  11. FOLIC ACID. [Concomitant]
     Active Substance: FOLIC ACID
  12. LETAIRIS [Suspect]
     Active Substance: AMBRISENTAN
     Dosage: 10 MG, UNK
     Route: 065
     Dates: start: 201406
  13. LIPITOR [Concomitant]
     Active Substance: ATORVASTATIN CALCIUM

REACTIONS (1)
  - Myocardial infarction [Unknown]

NARRATIVE: CASE EVENT DATE: 20140530
